FAERS Safety Report 21346074 (Version 1)
Quarter: 2022Q3

REPORT INFORMATION
  Report Type: Spontaneous
  Country: FR (occurrence: FR)
  Receive Date: 20220917
  Receipt Date: 20220917
  Transmission Date: 20221026
  Serious: Yes (Life-Threatening, Other)
  Sender: FDA-Public Use
  Company Number: FR-AFSSAPS-NT20222449

PATIENT
  Age: 6 Year
  Sex: Female
  Weight: 30 kg

DRUGS (5)
  1. CEFUROXIME [Suspect]
     Active Substance: CEFUROXIME
     Indication: Anaesthesia
     Dosage: NON PR?CIS?
     Route: 042
     Dates: start: 20210208, end: 20210208
  2. SEVOFLURANE [Suspect]
     Active Substance: SEVOFLURANE
     Indication: Anaesthesia
     Dosage: NON PR?CIS?
     Dates: start: 20210208, end: 20210208
  3. SUFENTANIL [Suspect]
     Active Substance: SUFENTANIL
     Indication: Anaesthesia
     Dosage: NON PR?CIS?
     Route: 042
     Dates: start: 20210208, end: 20210208
  4. TRACRIUM [Suspect]
     Active Substance: ATRACURIUM BESYLATE
     Indication: Anaesthesia
     Dosage: NON PR?CIS?
     Route: 042
     Dates: start: 20210208, end: 20210208
  5. VISIPAQUE [Suspect]
     Active Substance: IODIXANOL
     Indication: Anaesthesia
     Dosage: NON PR?CIS?
     Route: 042
     Dates: start: 20210208, end: 20210208

REACTIONS (1)
  - Anaphylactic shock [Recovered/Resolved]

NARRATIVE: CASE EVENT DATE: 20210208
